FAERS Safety Report 7450140-8 (Version None)
Quarter: 2011Q2

REPORT INFORMATION
  Report Type: 
  Country: None (occurrence: None)
  Receive Date: 20110421
  Receipt Date: 20110405
  Transmission Date: 20111010
  Serious: Yes (Hospitalization)
  Sender: FDA-Public Use
  Company Number: 1000020118

PATIENT
  Age: 63 Year
  Sex: Male
  Weight: 78 kg

DRUGS (1)
  1. DALIRESP [Suspect]
     Indication: CHRONIC OBSTRUCTIVE PULMONARY DISEASE
     Dosage: 500 MCG, (500 MCG), ORAL
     Route: 048
     Dates: start: 20110224, end: 20110315

REACTIONS (5)
  - DIVERTICULUM INTESTINAL [None]
  - PROCTITIS [None]
  - FAECALOMA [None]
  - CHOLECYSTITIS [None]
  - LIPOMA [None]
